FAERS Safety Report 8415429-4 (Version None)
Quarter: 2012Q2

REPORT INFORMATION
  Report Type: 
  Country: None (occurrence: None)
  Receive Date: 20120606
  Receipt Date: 20120531
  Transmission Date: 20120825
  Serious: Yes (Other)
  Sender: FDA-Public Use
  Company Number: PT-SANOFI-AVENTIS-2012SA038702

PATIENT
  Age: 22 Year
  Sex: Male

DRUGS (1)
  1. FEXOFENADINE HCL [Suspect]
     Route: 048
     Dates: start: 20120323, end: 20120524

REACTIONS (3)
  - DRY THROAT [None]
  - DYSPNOEA [None]
  - OEDEMA MOUTH [None]
